FAERS Safety Report 5723839-9 (Version None)
Quarter: 2008Q2

REPORT INFORMATION
  Report Type: 
  Country: None (occurrence: None)
  Receive Date: 20080429
  Receipt Date: 20080429
  Transmission Date: 20081010
  Serious: Yes (Other)
  Sender: FDA-Public Use
  Company Number: None

PATIENT
  Age: 52 Year
  Sex: Male
  Weight: 89.8122 kg

DRUGS (1)
  1. CREST W/ FLUORIDE [Suspect]
     Dosage: 2G 3 TIMES DENTAL
     Route: 004
     Dates: start: 20080210, end: 20080328

REACTIONS (1)
  - STOMATITIS [None]
